FAERS Safety Report 6889519-1 (Version None)
Quarter: 2010Q3

REPORT INFORMATION
  Report Type: 
  Country: None (occurrence: None)
  Receive Date: 20100730
  Receipt Date: 20080304
  Transmission Date: 20110219
  Serious: No
  Sender: FDA-Public Use
  Company Number: US-PFIZER INC-2008021211

PATIENT
  Sex: Male
  Weight: 86.363 kg

DRUGS (4)
  1. LIPITOR [Suspect]
     Indication: HIGH DENSITY LIPOPROTEIN DECREASED
  2. ANTIINFLAMMATORY/ANTIRHEUMATIC PRODUCTS [Suspect]
     Dates: start: 20070101, end: 20070101
  3. ATENOLOL [Concomitant]
     Indication: ARRHYTHMIA
  4. ASPIRIN [Concomitant]

REACTIONS (1)
  - BLOOD POTASSIUM INCREASED [None]
